FAERS Safety Report 26217814 (Version 1)
Quarter: 2025Q4

REPORT INFORMATION
  Report Type: Spontaneous
  Country: US (occurrence: US)
  Receive Date: 20251231
  Receipt Date: 20251231
  Transmission Date: 20260117
  Serious: Yes (Death, Hospitalization)
  Sender: TEVA
  Company Number: US-TEVA-VS-3408331

PATIENT
  Age: 32 Year
  Sex: Female

DRUGS (4)
  1. LEVOFLOXACIN [Suspect]
     Active Substance: LEVOFLOXACIN
     Indication: Alpha haemolytic streptococcal infection
     Route: 065
  2. VANCOMYCIN [Suspect]
     Active Substance: VANCOMYCIN
     Indication: Alpha haemolytic streptococcal infection
     Route: 065
  3. MICAFUNGIN [Concomitant]
     Active Substance: MICAFUNGIN SODIUM
     Indication: Antifungal treatment
  4. MEROPENEM [Suspect]
     Active Substance: MEROPENEM
     Indication: Alpha haemolytic streptococcal infection
     Route: 065

REACTIONS (1)
  - Drug ineffective [Fatal]
